FAERS Safety Report 7588505-6 (Version None)
Quarter: 2011Q3

REPORT INFORMATION
  Report Type: 
  Country: None (occurrence: None)
  Receive Date: 20110705
  Receipt Date: 20110628
  Transmission Date: 20111222
  Serious: Yes (Other)
  Sender: FDA-Public Use
  Company Number: JP-PFIZER INC-2011144672

PATIENT
  Age: 71 Year
  Sex: Female

DRUGS (3)
  1. LYRICA [Suspect]
     Indication: HYPOAESTHESIA
     Dosage: 150 MG, DAILY
     Route: 048
     Dates: start: 20110525, end: 20110527
  2. CARBOPLATIN [Concomitant]
     Indication: SARCOMA UTERUS
     Dosage: 600 MG, UNK
     Route: 041
     Dates: start: 20110302
  3. TAXOTERE [Concomitant]
     Indication: SARCOMA UTERUS
     Dosage: 120 MG, UNK
     Route: 041
     Dates: start: 20110302

REACTIONS (3)
  - DIZZINESS [None]
  - CLAVICLE FRACTURE [None]
  - FALL [None]
